FAERS Safety Report 25867497 (Version 1)
Quarter: 2025Q4

REPORT INFORMATION
  Report Type: Spontaneous
  Country: UA (occurrence: UA)
  Receive Date: 20251001
  Receipt Date: 20251001
  Transmission Date: 20260117
  Serious: Yes (Hospitalization)
  Sender: ROCHE
  Company Number: UA-ROCHE-10000399569

PATIENT
  Age: 19 Year
  Sex: Male
  Weight: 65 kg

DRUGS (1)
  1. HEMLIBRA [Suspect]
     Active Substance: EMICIZUMAB-KXWH
     Indication: Haemophilia A with anti factor VIII
     Dosage: 2 VIALS OF 105 MG + 3 VIALS OF 60 MG
     Route: 065
     Dates: start: 202412

REACTIONS (3)
  - Dysuria [Unknown]
  - Haematuria [Unknown]
  - Back pain [Unknown]
